FAERS Safety Report 6691824-9 (Version None)
Quarter: 2010Q2

REPORT INFORMATION
  Report Type: 
  Country: None (occurrence: None)
  Receive Date: 20100422
  Receipt Date: 20100412
  Transmission Date: 20101027
  Serious: Yes (Other)
  Sender: FDA-Public Use
  Company Number: PHHY2010FR22953

PATIENT
  Age: 72 Year
  Sex: Female

DRUGS (1)
  1. RASILEZ [Suspect]
     Dosage: UNK
     Route: 048
     Dates: start: 20100329

REACTIONS (2)
  - ERYTHEMA [None]
  - EYELID OEDEMA [None]
